FAERS Safety Report 7400672-3 (Version None)
Quarter: 2011Q2

REPORT INFORMATION
  Report Type: 
  Country: None (occurrence: None)
  Receive Date: 20110407
  Receipt Date: 20110401
  Transmission Date: 20111010
  Serious: Yes (Hospitalization)
  Sender: FDA-Public Use
  Company Number: A0773286A

PATIENT
  Sex: Female
  Weight: 83.2 kg

DRUGS (6)
  1. AVANDIA [Suspect]
     Dosage: 4MG UNKNOWN
     Route: 048
     Dates: start: 20030101, end: 20060501
  2. ZOCOR [Concomitant]
  3. GLYBURIDE [Concomitant]
  4. ALBUTEROL [Concomitant]
  5. METFORMIN HCL [Concomitant]
  6. ADVAIR HFA [Concomitant]

REACTIONS (7)
  - ANGINA PECTORIS [None]
  - CARDIAC FAILURE CONGESTIVE [None]
  - ARRHYTHMIA [None]
  - DEPRESSION [None]
  - CONGESTIVE CARDIOMYOPATHY [None]
  - ANXIETY [None]
  - ACUTE CORONARY SYNDROME [None]
